FAERS Safety Report 4502730-X (Version None)
Quarter: 2004Q4

REPORT INFORMATION
  Report Type: 
  Country: None (occurrence: None)
  Receive Date: 20041112
  Receipt Date: 20041105
  Transmission Date: 20050328
  Serious: Yes (Other)
  Sender: FDA-Public Use
  Company Number: S04-USA-07259-01

PATIENT
  Age: 53 Year
  Sex: Female

DRUGS (5)
  1. LEXAPRO [Suspect]
     Dosage: 15 MG QD PO
     Route: 048
     Dates: start: 20040705
  2. KLONOPIN [Concomitant]
  3. ABILIFY [Concomitant]
  4. TRILEPTAL [Concomitant]
  5. ZOCOR [Concomitant]

REACTIONS (1)
  - PHLEBITIS [None]
